FAERS Safety Report 4802402-8 (Version None)
Quarter: 2005Q4

REPORT INFORMATION
  Report Type: 
  Country: None (occurrence: None)
  Receive Date: 20051013
  Receipt Date: 20050930
  Transmission Date: 20060501
  Serious: Yes (Other)
  Sender: FDA-Public Use
  Company Number: 2005136330

PATIENT
  Age: 27 Year
  Sex: 0

DRUGS (6)
  1. DILANTIN [Suspect]
     Indication: GRAND MAL CONVULSION
     Dosage: UNKNOWN, INTRAVENOUS
     Route: 042
     Dates: start: 20050901, end: 20050901
  2. NEURONTIN [Suspect]
     Indication: GRAND MAL CONVULSION
     Dosage: 900 MG (300 MG, 3 IN 1 D), ORAL
     Route: 048
     Dates: start: 20050901
  3. VIAGRA [Suspect]
     Indication: ERECTILE DYSFUNCTION
     Dosage: UNK (50 MG, UNKNOWN)
     Route: 065
     Dates: start: 20050901
  4. ADVAIR DISKUS 100/50 [Concomitant]
  5. WELLBUTRIN XL [Concomitant]
  6. BUSPAR [Concomitant]

REACTIONS (10)
  - ANXIETY [None]
  - BURNING SENSATION [None]
  - CONDITION AGGRAVATED [None]
  - DRUG INEFFECTIVE [None]
  - EPILEPSY [None]
  - INCORRECT DOSE ADMINISTERED [None]
  - PETIT MAL EPILEPSY [None]
  - SELF-MEDICATION [None]
  - WEIGHT DECREASED [None]
  - WEIGHT FLUCTUATION [None]
